FAERS Safety Report 8054391-3 (Version None)
Quarter: 2012Q1

REPORT INFORMATION
  Report Type: 
  Country: None (occurrence: None)
  Receive Date: 20120118
  Receipt Date: 20120117
  Transmission Date: 20120608
  Serious: No
  Sender: FDA-Public Use
  Company Number: US-BAYER-2012-005637

PATIENT
  Age: 32 Year
  Sex: Female

DRUGS (2)
  1. MAGNEVIST [Suspect]
     Indication: ABDOMINAL PAIN
  2. MAGNEVIST [Suspect]
     Indication: NUCLEAR MAGNETIC RESONANCE IMAGING
     Dosage: 10.8 ML, ONCE
     Dates: start: 20120117, end: 20120117

REACTIONS (3)
  - VOMITING [None]
  - THROAT IRRITATION [None]
  - MUSCLE TIGHTNESS [None]
